FAERS Safety Report 6379553-2 (Version None)
Quarter: 2009Q3

REPORT INFORMATION
  Report Type: 
  Country: None (occurrence: None)
  Receive Date: 20090923
  Receipt Date: 20090916
  Transmission Date: 20100115
  Serious: Yes (Other)
  Sender: FDA-Public Use
  Company Number: 2009SP025921

PATIENT
  Age: 26 Year
  Sex: Male

DRUGS (3)
  1. CLARITIN-D 24 HOUR [Suspect]
     Indication: EYE PRURITUS
     Dosage: ; PO
     Route: 048
  2. CLARITIN-D 24 HOUR [Suspect]
     Indication: LACRIMATION INCREASED
     Dosage: ; PO
     Route: 048
  3. CLARITIN-D 24 HOUR [Suspect]
     Indication: RHINORRHOEA
     Dosage: ; PO
     Route: 048

REACTIONS (1)
  - HYPOAESTHESIA [None]
